FAERS Safety Report 20491187 (Version 1)
Quarter: 2022Q1

REPORT INFORMATION
  Report Type: Spontaneous
  Country: US (occurrence: None)
  Receive Date: 20220218
  Receipt Date: 20220218
  Transmission Date: 20220423
  Serious: Yes (Death)
  Sender: FDA-Public Use
  Company Number: None

PATIENT
  Age: 76 Year
  Sex: Male

DRUGS (1)
  1. MYOBLOC [Suspect]
     Active Substance: RIMABOTULINUMTOXINB
     Dosage: 2500 UNIT   OTHER INTRAMUSCULAR? ?
     Route: 030
     Dates: start: 202102, end: 202202

REACTIONS (1)
  - Death [None]

NARRATIVE: CASE EVENT DATE: 20220217
